FAERS Safety Report 8808676 (Version 3)
Quarter: 2013Q2

REPORT INFORMATION
  Report Type: Spontaneous
  Country: US (occurrence: None)
  Receive Date: 20120921
  Receipt Date: 20130416
  Transmission Date: 20140414
  Serious: Yes (Hospitalization)
  Sender: FDA-Public Use
  Company Number: 2012033401

PATIENT
  Age: 69 Year
  Sex: Female
  Weight: 65.77 kg

DRUGS (7)
  1. HIZENTRA [Suspect]
     Indication: IMMUNODEFICIENCY COMMON VARIABLE
     Route: 058
  2. ATENOLOL (ATENOLOL) [Concomitant]
  3. METOPROLOL (METOPROLOL) [Concomitant]
  4. CRESTOR (ROSUVASTATIN) [Concomitant]
  5. ADVAIR (SERETIDE /01420901/) [Concomitant]
  6. ALBUTEROL (SALBUTAMOL) [Concomitant]
  7. ESTRADIOL (ESTRADIOL) [Concomitant]

REACTIONS (1)
  - Myocardial infarction [None]
